FAERS Safety Report 6643001-5 (Version None)
Quarter: 2010Q1

REPORT INFORMATION
  Report Type: 
  Country: None (occurrence: None)
  Receive Date: 20100319
  Receipt Date: 20100312
  Transmission Date: 20100710
  Serious: Yes (Other)
  Sender: FDA-Public Use
  Company Number: A0850925A

PATIENT
  Sex: Male

DRUGS (2)
  1. AVANDIA [Suspect]
     Indication: PROPHYLAXIS
     Route: 065
  2. POLIGRIP [Concomitant]

REACTIONS (1)
  - MYOCARDIAL INFARCTION [None]
